FAERS Safety Report 8113660-9 (Version None)
Quarter: 2012Q1

REPORT INFORMATION
  Report Type: 
  Country: None (occurrence: None)
  Receive Date: 20120131
  Receipt Date: 20101005
  Transmission Date: 20120608
  Serious: Yes (Hospitalization)
  Sender: FDA-Public Use
  Company Number: 2010005269

PATIENT
  Age: 60 Year
  Sex: Female

DRUGS (8)
  1. OMEPRAZOLE [Concomitant]
  2. SIMVASTATIN [Concomitant]
  3. ERYMAX [Suspect]
     Indication: LOWER RESPIRATORY TRACT INFECTION
     Dosage: 250 MG (250 MG, 1 IN 1 D)  500 MG (500 MG, 1 IN 1 D)
     Route: 048
     Dates: start: 20100726
  4. ERYMAX [Suspect]
     Indication: LOWER RESPIRATORY TRACT INFECTION
     Dosage: 250 MG (250 MG, 1 IN 1 D)  500 MG (500 MG, 1 IN 1 D)
     Route: 048
     Dates: start: 20100810, end: 20100813
  5. LEVOTHYROXINE SODIUM [Concomitant]
  6. ZIMOVANE [Concomitant]
  7. QUETIAPINE [Suspect]
     Indication: BIPOLAR DISORDER
     Dosage: , (450 MG)
     Dates: start: 20100726
  8. LITHIUM CARBONATE [Concomitant]

REACTIONS (5)
  - SEDATION [None]
  - LOWER RESPIRATORY TRACT INFECTION [None]
  - SOMNOLENCE [None]
  - MALAISE [None]
  - LETHARGY [None]
